FAERS Safety Report 21082427 (Version 1)
Quarter: 2022Q3

REPORT INFORMATION
  Report Type: Spontaneous
  Country: US (occurrence: None)
  Receive Date: 20220714
  Receipt Date: 20220714
  Transmission Date: 20221027
  Serious: Yes (Hospitalization)
  Sender: FDA-Public Use
  Company Number: None

PATIENT
  Age: 71 Year
  Sex: Male

DRUGS (1)
  1. AMPHOTERICIN B [Suspect]
     Active Substance: AMPHOTERICIN B
     Dosage: FREQUENCY : ONCE;?
     Route: 042
     Dates: start: 20220624, end: 20220624

REACTIONS (11)
  - Abnormal behaviour [None]
  - Slow speech [None]
  - Confusional state [None]
  - Pollakiuria [None]
  - Diarrhoea [None]
  - Loss of personal independence in daily activities [None]
  - Wheezing [None]
  - Pulmonary congestion [None]
  - Stridor [None]
  - Flushing [None]
  - Anaphylactic reaction [None]

NARRATIVE: CASE EVENT DATE: 20220624
